FAERS Safety Report 5119591-0 (Version None)
Quarter: 2006Q3

REPORT INFORMATION
  Report Type: 
  Country: None (occurrence: None)
  Receive Date: 20060929
  Receipt Date: 20060919
  Transmission Date: 20061208
  Serious: Yes (Hospitalization)
  Sender: FDA-Public Use
  Company Number: 2006114849

PATIENT
  Sex: Female

DRUGS (1)
  1. CABERGOLINE [Suspect]

REACTIONS (2)
  - CARDIAC VALVE DISEASE [None]
  - CHEST PAIN [None]
